FAERS Safety Report 8256045-7 (Version None)
Quarter: 2012Q2

REPORT INFORMATION
  Report Type: 
  Country: None (occurrence: None)
  Receive Date: 20120403
  Receipt Date: 20120320
  Transmission Date: 20120825
  Serious: Yes (Hospitalization)
  Sender: FDA-Public Use
  Company Number: IT-ROCHE-1053859

PATIENT
  Sex: Female

DRUGS (3)
  1. TACHIDOL [Suspect]
     Indication: PRODUCT USED FOR UNKNOWN INDICATION
     Route: 048
     Dates: start: 20111005, end: 20111005
  2. TORADOL [Suspect]
     Indication: PRODUCT USED FOR UNKNOWN INDICATION
     Dosage: 30 MG/ML, 1X
     Route: 030
     Dates: start: 20111005, end: 20111005
  3. AULIN [Suspect]
     Indication: PRODUCT USED FOR UNKNOWN INDICATION
     Dosage: FORM REPORTED AS GRANULES FOR ORAL SUSPENSION
     Route: 048
     Dates: start: 20111004, end: 20111004

REACTIONS (2)
  - ABDOMINAL PAIN UPPER [None]
  - LIVER DISORDER [None]
